FAERS Safety Report 11343676 (Version 1)
Quarter: 2015Q3

REPORT INFORMATION
  Report Type: Spontaneous
  Country: US (occurrence: None)
  Receive Date: 20150804
  Receipt Date: 20150804
  Transmission Date: 20151125
  Serious: No
  Sender: FDA-Public Use
  Company Number: None

PATIENT
  Age: 51 Year
  Sex: Male

DRUGS (4)
  1. IV CONTRAST [Suspect]
     Active Substance: UNSPECIFIED INGREDIENT
  2. IV CONTRAST [Concomitant]
     Active Substance: UNSPECIFIED INGREDIENT
  3. LISINOPRIL. [Concomitant]
     Active Substance: LISINOPRIL
  4. VANCOMYCIN [Suspect]
     Active Substance: VANCOMYCIN
     Indication: CELLULITIS
     Route: 042
     Dates: start: 20141024, end: 20141026

REACTIONS (2)
  - Acute kidney injury [None]
  - Diabetic foot infection [None]

NARRATIVE: CASE EVENT DATE: 20141026
